FAERS Safety Report 5764987-7 (Version None)
Quarter: 2008Q2

REPORT INFORMATION
  Report Type: 
  Country: None (occurrence: None)
  Receive Date: 20080606
  Receipt Date: 20080606
  Transmission Date: 20081010
  Serious: Yes (Hospitalization)
  Sender: FDA-Public Use
  Company Number: None

PATIENT
  Age: 66 Year
  Sex: Female
  Weight: 80.7403 kg

DRUGS (2)
  1. DIGOXIN [Suspect]
     Indication: ATRIAL FIBRILLATION
     Dosage: TAB ONCE DAILY ORAL SEVERAL YEARS
     Route: 048
  2. DIGOXIN [Suspect]
     Indication: HEART RATE ABNORMAL
     Dosage: TAB ONCE DAILY ORAL SEVERAL YEARS
     Route: 048

REACTIONS (6)
  - BACK PAIN [None]
  - CHEST PAIN [None]
  - HEART RATE INCREASED [None]
  - HEART RATE IRREGULAR [None]
  - NECK PAIN [None]
  - PAIN IN EXTREMITY [None]
